FAERS Safety Report 6403234-X (Version None)
Quarter: 2009Q4

REPORT INFORMATION
  Report Type: 
  Country: None (occurrence: None)
  Receive Date: 20091015
  Receipt Date: 20091015
  Transmission Date: 20100525
  Serious: Yes (Other)
  Sender: FDA-Public Use
  Company Number: None

PATIENT
  Sex: Female
  Weight: 49.8957 kg

DRUGS (1)
  1. ORTHO TRI-CYCLEN [Suspect]
     Indication: METRORRHAGIA
     Dosage: 28 QD
     Dates: start: 20090924

REACTIONS (2)
  - RASH [None]
  - VOMITING [None]
